FAERS Safety Report 20580997 (Version 4)
Quarter: 2022Q4

REPORT INFORMATION
  Report Type: Report from Study
  Country: US (occurrence: US)
  Receive Date: 20220311
  Receipt Date: 20221207
  Transmission Date: 20230113
  Serious: Yes (Other)
  Sender: FDA-Public Use
  Company Number: US-NOVARTISPH-NVSC2022US054732

PATIENT
  Age: 64 Year
  Sex: Female

DRUGS (1)
  1. COSENTYX [Suspect]
     Active Substance: SECUKINUMAB
     Indication: Axial spondyloarthritis
     Dosage: UNK
     Route: 065
     Dates: start: 20211124

REACTIONS (7)
  - Impaired gastric emptying [Unknown]
  - Injection site pain [Unknown]
  - Weight decreased [Unknown]
  - Procedural pain [Not Recovered/Not Resolved]
  - Axial spondyloarthritis [Unknown]
  - Neck pain [Unknown]
  - Back pain [Unknown]

NARRATIVE: CASE EVENT DATE: 20221121
